FAERS Safety Report 4360794-0 (Version None)
Quarter: 2004Q2

REPORT INFORMATION
  Report Type: 
  Country: None (occurrence: None)
  Receive Date: 20040517
  Receipt Date: 20040511
  Transmission Date: 20050107
  Serious: Yes (Other)
  Sender: FDA-Public Use
  Company Number: 2004-05-0706

PATIENT
  Age: 46 Year
  Sex: Female

DRUGS (2)
  1. PEG-INTRON (PEGINTERFERON ALFA-2B) INJECTABLE POWDER [Suspect]
     Indication: HEPATITIS
     Dosage: SUBCUTANEOUS
     Route: 058
     Dates: start: 20020501, end: 20030801
  2. REBETOL [Suspect]
     Indication: HEPATITIS
     Dosage: ORAL
     Route: 048
     Dates: start: 20020501, end: 20030801

REACTIONS (1)
  - CARDIOMEGALY [None]
